FAERS Safety Report 7240813-4 (Version None)
Quarter: 2011Q1

REPORT INFORMATION
  Report Type: 
  Country: None (occurrence: None)
  Receive Date: 20110113
  Receipt Date: 20110107
  Transmission Date: 20110831
  Serious: Yes (Other)
  Sender: FDA-Public Use
  Company Number: 2008-178051-NL

PATIENT
  Age: 24 Year
  Sex: Female
  Weight: 58.1 kg

DRUGS (13)
  1. BENADRYL [Concomitant]
  2. CEPHALEXIN [Concomitant]
  3. SSKI [Concomitant]
  4. NUVARING [Suspect]
     Indication: CONTRACEPTION
     Dosage: VAG
     Route: 067
     Dates: start: 20060401, end: 20080101
  5. SYNTHROID [Concomitant]
  6. NADOLOL [Concomitant]
  7. METHIMAZOLE [Concomitant]
  8. PROPOXYPHENE NAPSYLATE AND ACETAMINOPHEN [Concomitant]
  9. TYLENOL-500 [Concomitant]
  10. PROVENTIL [Concomitant]
  11. METOPROLOL [Concomitant]
  12. METOPROLOL [Concomitant]
  13. LEVOTHYROXINE [Concomitant]

REACTIONS (47)
  - PAIN [None]
  - MUSCULOSKELETAL PAIN [None]
  - AREFLEXIA [None]
  - FEELING JITTERY [None]
  - ALOPECIA [None]
  - MENSTRUATION IRREGULAR [None]
  - VOMITING [None]
  - AMENORRHOEA [None]
  - COAGULOPATHY [None]
  - CHRONIC SINUSITIS [None]
  - TREMOR [None]
  - UPPER RESPIRATORY TRACT INFECTION [None]
  - SINUS TACHYCARDIA [None]
  - VISUAL ACUITY REDUCED [None]
  - HEMIPARESIS [None]
  - BALANCE DISORDER [None]
  - MIGRAINE [None]
  - DRUG EXPOSURE BEFORE PREGNANCY [None]
  - MUSCLE SPASMS [None]
  - WEIGHT DECREASED [None]
  - APHTHOUS STOMATITIS [None]
  - DYSPNOEA [None]
  - CHEST DISCOMFORT [None]
  - DRUG INEFFECTIVE [None]
  - ASTHMA [None]
  - SPEECH DISORDER [None]
  - NAUSEA [None]
  - DYSPHAGIA [None]
  - OVARIAN CYST [None]
  - PHARYNGITIS [None]
  - CEREBROVASCULAR ACCIDENT [None]
  - BLINDNESS [None]
  - FATIGUE [None]
  - TRANSIENT ISCHAEMIC ATTACK [None]
  - DRUG ADMINISTRATION ERROR [None]
  - PAIN IN EXTREMITY [None]
  - CHEST PAIN [None]
  - PYREXIA [None]
  - DYSKINESIA [None]
  - POST PROCEDURAL HYPOTHYROIDISM [None]
  - OEDEMA MOUTH [None]
  - FACIAL PARESIS [None]
  - PARAESTHESIA [None]
  - PREGNANCY [None]
  - C-REACTIVE PROTEIN INCREASED [None]
  - BASEDOW'S DISEASE [None]
  - HEADACHE [None]
